FAERS Safety Report 7897177-2 (Version None)
Quarter: 2011Q4

REPORT INFORMATION
  Report Type: 
  Country: None (occurrence: None)
  Receive Date: 20111107
  Receipt Date: 20111024
  Transmission Date: 20120403
  Serious: Yes (Other)
  Sender: FDA-Public Use
  Company Number: CA-ELI_LILLY_AND_COMPANY-CA201110006120

PATIENT
  Sex: Female

DRUGS (15)
  1. TEMAZEPAM [Concomitant]
  2. DIVALPROEX SODIUM [Concomitant]
  3. WELLBUTRIN XL [Concomitant]
  4. ZYPREXA [Suspect]
     Dosage: 10 MG, EACH EVENING
  5. ZYPREXA [Suspect]
     Indication: SCHIZOAFFECTIVE DISORDER
     Dosage: 10 MG, UNK
     Dates: end: 20080131
  6. RISPERDAL [Concomitant]
  7. BENZTROPINE MESYLATE [Concomitant]
  8. CLONAZEPAM [Concomitant]
  9. ZOPICLONE [Concomitant]
  10. NITRAZEPAM [Concomitant]
  11. FLUOXETINE HCL [Concomitant]
  12. LITHIUM CITRATE [Concomitant]
  13. ZYPREXA [Suspect]
     Indication: SCHIZOAFFECTIVE DISORDER
     Dosage: 5 MG, UNK
     Dates: start: 20030506, end: 20080131
  14. ZYPREXA [Suspect]
     Dosage: 20 MG, EACH EVENING
  15. VENLAFAXINE [Concomitant]

REACTIONS (5)
  - ALANINE AMINOTRANSFERASE INCREASED [None]
  - HEPATITIS C [None]
  - ASPARTATE AMINOTRANSFERASE INCREASED [None]
  - HYPERGLYCAEMIA [None]
  - GAMMA-GLUTAMYLTRANSFERASE INCREASED [None]
